FAERS Safety Report 8348990-9 (Version None)
Quarter: 2012Q2

REPORT INFORMATION
  Report Type: 
  Country: None (occurrence: None)
  Receive Date: 20120510
  Receipt Date: 20120502
  Transmission Date: 20120825
  Serious: Yes (Other)
  Sender: FDA-Public Use
  Company Number: IT-JNJFOC-20120504336

PATIENT
  Age: 29 Year
  Sex: Female

DRUGS (3)
  1. SIMPONI [Suspect]
     Route: 058
     Dates: start: 20120323, end: 20120323
  2. SIMPONI [Suspect]
     Indication: PRODUCT USED FOR UNKNOWN INDICATION
     Route: 058
     Dates: start: 20120223, end: 20120223
  3. METHYLPREDNISOLONE [Concomitant]
     Route: 048

REACTIONS (3)
  - DYSPNOEA [None]
  - SWELLING FACE [None]
  - TACHYCARDIA [None]
